FAERS Safety Report 17983236 (Version 2)
Quarter: 2020Q3

REPORT INFORMATION
  Report Type: Spontaneous
  Country: US (occurrence: US)
  Receive Date: 20200706
  Receipt Date: 20200814
  Transmission Date: 20201103
  Serious: Yes (Death, Hospitalization)
  Sender: FDA-Public Use
  Company Number: US-JNJFOC-20200702226

PATIENT
  Age: 91 Year
  Sex: Male

DRUGS (13)
  1. PREDNISONE. [Concomitant]
     Active Substance: PREDNISONE
     Indication: PROSTATE CANCER
  2. KEPPRA [Concomitant]
     Active Substance: LEVETIRACETAM
  3. SIMVASTATIN. [Concomitant]
     Active Substance: SIMVASTATIN
     Indication: BLOOD CHOLESTEROL
  4. WARFARIN [Concomitant]
     Active Substance: WARFARIN
  5. METOPROLOL. [Concomitant]
     Active Substance: METOPROLOL
     Indication: BLOOD PRESSURE MEASUREMENT
  6. FUROSEMIDE. [Concomitant]
     Active Substance: FUROSEMIDE
  7. XGEVA [Concomitant]
     Active Substance: DENOSUMAB
  8. VITAMIN D                          /00107901/ [Concomitant]
     Active Substance: ERGOCALCIFEROL
  9. ALLOPURINOL. [Concomitant]
     Active Substance: ALLOPURINOL
     Indication: GOUT
  10. ZYTIGA [Suspect]
     Active Substance: ABIRATERONE ACETATE
     Indication: PROSTATE CANCER
     Route: 048
  11. VITAMIN C [Concomitant]
     Active Substance: ASCORBIC ACID
  12. PANTOPRAZOLE [Concomitant]
     Active Substance: PANTOPRAZOLE
  13. LUPRON [Concomitant]
     Active Substance: LEUPROLIDE ACETATE

REACTIONS (3)
  - Cardiac failure acute [Fatal]
  - Localised infection [Unknown]
  - Extremity necrosis [Unknown]

NARRATIVE: CASE EVENT DATE: 20200519
